FAERS Safety Report 6899303-0 (Version None)
Quarter: 2010Q3

REPORT INFORMATION
  Report Type: 
  Country: None (occurrence: None)
  Receive Date: 20100802
  Receipt Date: 20090320
  Transmission Date: 20110219
  Serious: Yes (Life-Threatening, Other)
  Sender: FDA-Public Use
  Company Number: US-PFIZER INC-2007101637

PATIENT
  Sex: Female
  Weight: 87.1 kg

DRUGS (2)
  1. LYRICA [Suspect]
     Indication: PAIN
     Route: 048
     Dates: start: 20071114, end: 20071215
  2. MOTRIN [Suspect]

REACTIONS (1)
  - PLATELET COUNT DECREASED [None]
